FAERS Safety Report 6142198-3 (Version None)
Quarter: 2009Q2

REPORT INFORMATION
  Report Type: 
  Country: None (occurrence: None)
  Receive Date: 20090403
  Receipt Date: 20090324
  Transmission Date: 20091009
  Serious: Yes (Death, Hospitalization)
  Sender: FDA-Public Use
  Company Number: US-BAXTER-2009BH004766

PATIENT
  Age: 65 Year
  Sex: Male

DRUGS (2)
  1. DIANEAL [Suspect]
     Indication: PERITONEAL DIALYSIS
     Route: 033
     Dates: start: 20090101, end: 20090321
  2. DIANEAL [Suspect]
     Route: 033
     Dates: start: 20070101, end: 20090101

REACTIONS (3)
  - CARDIAC ARREST [None]
  - GANGRENE [None]
  - PERIPHERAL VASCULAR DISORDER [None]
